FAERS Safety Report 5822894-5 (Version None)
Quarter: 2008Q3

REPORT INFORMATION
  Report Type: 
  Country: None (occurrence: None)
  Receive Date: 20080724
  Receipt Date: 20080724
  Transmission Date: 20090109
  Serious: Yes (Life-Threatening, Hospitalization)
  Sender: FDA-Public Use
  Company Number: None

PATIENT
  Age: 54 Year
  Sex: Female
  Weight: 54.4316 kg

DRUGS (1)
  1. LAMICTAL [Suspect]
     Indication: CONVULSION
     Dosage: 100MG BID PO, 7-8 WEEKS -APPROX-
     Route: 048
     Dates: start: 20070810, end: 20071007

REACTIONS (14)
  - AGEUSIA [None]
  - EYE SWELLING [None]
  - ILL-DEFINED DISORDER [None]
  - LIP SWELLING [None]
  - MUCOUS MEMBRANE DISORDER [None]
  - NAIL DISORDER [None]
  - OEDEMA MOUTH [None]
  - PAIN [None]
  - PARAESTHESIA [None]
  - PRURITUS [None]
  - SCAR [None]
  - STEVENS-JOHNSON SYNDROME [None]
  - SWELLING FACE [None]
  - SWOLLEN TONGUE [None]
